FAERS Safety Report 10056801 (Version 2)
Quarter: 2014Q2

REPORT INFORMATION
  Report Type: Spontaneous
  Country: JP (occurrence: JP)
  Receive Date: 20140403
  Receipt Date: 20140425
  Transmission Date: 20141212
  Serious: Yes (Life-Threatening, Other)
  Sender: FDA-Public Use
  Company Number: PHHY2014JP036547

PATIENT
  Age: 29 Year
  Sex: Female

DRUGS (3)
  1. MAGNESIUM SULFATE [Suspect]
     Indication: THREATENED LABOUR
  2. HEPARIN [Suspect]
  3. RITODRINE HYDROCHLORIDE [Suspect]
     Indication: THREATENED LABOUR
     Route: 065

REACTIONS (10)
  - Cardiogenic shock [Recovering/Resolving]
  - Peripartum cardiomyopathy [Recovering/Resolving]
  - Premature delivery [Unknown]
  - Tachycardia [Unknown]
  - Dyspnoea [Unknown]
  - Coagulopathy [Unknown]
  - Intra-abdominal haemorrhage [Unknown]
  - Genital haemorrhage [Unknown]
  - Haemorrhage [Unknown]
  - Maternal exposure during pregnancy [Unknown]
